FAERS Safety Report 6283077-0 (Version None)
Quarter: 2009Q3

REPORT INFORMATION
  Report Type: 
  Country: None (occurrence: None)
  Receive Date: 20090724
  Receipt Date: 20090715
  Transmission Date: 20100115
  Serious: Yes (Hospitalization)
  Sender: FDA-Public Use
  Company Number: A0718383A

PATIENT
  Age: 53 Year
  Sex: Male
  Weight: 106.8 kg

DRUGS (14)
  1. AVANDIA [Suspect]
     Dosage: 4MG TWICE PER DAY
     Dates: start: 20000701, end: 20070101
  2. AVANDAMET [Suspect]
     Dates: start: 20030101, end: 20070101
  3. AVANDARYL [Suspect]
     Dates: start: 20030101, end: 20070101
  4. VYTORIN [Concomitant]
  5. METOPROLOL SUCCINATE [Concomitant]
  6. LEXAPRO [Concomitant]
  7. LISINOPRIL [Concomitant]
  8. AMARYL [Concomitant]
  9. LORAZEPAM [Concomitant]
     Dosage: 5MG TWICE PER DAY
  10. ASPIRIN [Concomitant]
     Dosage: 81MG TWICE PER DAY
  11. SIMVASTATIN [Concomitant]
     Dosage: 80MG PER DAY
  12. NIACIN [Concomitant]
     Dosage: 500U TWICE PER DAY
  13. VITAMIN E [Concomitant]
  14. MULTI-VITAMIN [Concomitant]

REACTIONS (9)
  - ARTERIAL OCCLUSIVE DISEASE [None]
  - CARDIAC FAILURE CONGESTIVE [None]
  - DIAPHRAGMATIC PARALYSIS [None]
  - DYSPNOEA [None]
  - GAIT DISTURBANCE [None]
  - INJURY [None]
  - MYOCARDIAL INFARCTION [None]
  - PERIPHERAL VASCULAR DISORDER [None]
  - VENTRICULAR FIBRILLATION [None]
